FAERS Safety Report 9256245 (Version 1)
Quarter: 2013Q2

REPORT INFORMATION
  Report Type: Spontaneous
  Country: US (occurrence: US)
  Receive Date: 20130425
  Receipt Date: 20130425
  Transmission Date: 20140414
  Serious: Yes (Hospitalization)
  Sender: FDA-Public Use
  Company Number: US-AMGEN-USASP2012076807

PATIENT
  Age: 26 Year
  Sex: Female
  Weight: 56.3 kg

DRUGS (3)
  1. NEULASTA [Suspect]
     Indication: RENAL CELL CARCINOMA
     Dosage: 6 MG, CYCLIC ON EVERY DAY 6
     Route: 058
     Dates: start: 20121106, end: 20121106
  2. DOCETAXEL [Concomitant]
     Indication: RENAL CELL CARCINOMA
     Dosage: UNK, CYCLIC
     Route: 042
     Dates: start: 20121101, end: 20121101
  3. ALISERTIB [Concomitant]
     Dosage: 40 MG, CYCLIC
     Route: 048
     Dates: start: 20121101, end: 20121105

REACTIONS (1)
  - Bone pain [Not Recovered/Not Resolved]
